FAERS Safety Report 17021014 (Version 2)
Quarter: 2019Q4

REPORT INFORMATION
  Report Type: Report from Study
  Country: DE (occurrence: DE)
  Receive Date: 20191112
  Receipt Date: 20191115
  Transmission Date: 20200122
  Serious: Yes (Death, Hospitalization, Other)
  Sender: FDA-Public Use
  Company Number: PHHY2018DE074251

PATIENT
  Sex: Male
  Weight: 86 kg

DRUGS (7)
  1. AFINITOR [Suspect]
     Active Substance: EVEROLIMUS
     Dosage: UNK
     Route: 065
  2. VOTRIENT [Suspect]
     Active Substance: PAZOPANIB HYDROCHLORIDE
     Indication: METASTATIC RENAL CELL CARCINOMA
     Dosage: 800 MG, QD
     Route: 048
     Dates: start: 20170118, end: 20170302
  3. MIRTAZAPIN [Concomitant]
     Active Substance: MIRTAZAPINE
     Indication: ADJUSTMENT DISORDER WITH DEPRESSED MOOD
     Dosage: 15 MG, QD
     Route: 048
  4. VOTRIENT [Suspect]
     Active Substance: PAZOPANIB HYDROCHLORIDE
     Dosage: UNK
     Route: 048
     Dates: start: 20171026, end: 20171121
  5. VOTRIENT [Suspect]
     Active Substance: PAZOPANIB HYDROCHLORIDE
     Dosage: 800 MG, QD
     Route: 048
     Dates: start: 20170320, end: 20171025
  6. OPDIVO [Suspect]
     Active Substance: NIVOLUMAB
     Indication: METASTATIC RENAL CELL CARCINOMA
     Dosage: 3 MG/KG, DOSE PER INFUSION
     Route: 042
     Dates: start: 20171222, end: 20180302
  7. AFINITOR [Suspect]
     Active Substance: EVEROLIMUS
     Indication: METASTATIC RENAL CELL CARCINOMA
     Dosage: 10 MG, QD (DAILY)
     Route: 048
     Dates: start: 20180317, end: 20180504

REACTIONS (12)
  - Metastases to peritoneum [Unknown]
  - Renal cancer metastatic [Fatal]
  - Nausea [Not Recovered/Not Resolved]
  - Impaired gastric emptying [Recovering/Resolving]
  - Back pain [Not Recovered/Not Resolved]
  - Malignant neoplasm progression [Fatal]
  - Metastases to adrenals [Fatal]
  - Dyspnoea [Not Recovered/Not Resolved]
  - Metastases to pleura [Fatal]
  - Ascites [Unknown]
  - Spinal pain [Not Recovered/Not Resolved]
  - Faecal vomiting [Recovering/Resolving]

NARRATIVE: CASE EVENT DATE: 20180302
